FAERS Safety Report 4359529-7 (Version None)
Quarter: 2004Q2

REPORT INFORMATION
  Report Type: 
  Country: None (occurrence: None)
  Receive Date: 20040512
  Receipt Date: 20040422
  Transmission Date: 20050107
  Serious: Yes (Hospitalization)
  Sender: FDA-Public Use
  Company Number: USA040465748

PATIENT
  Age: 57 Year
  Sex: Female
  Weight: 102 kg

DRUGS (3)
  1. ZYPREXA [Suspect]
     Indication: BIPOLAR DISORDER
     Dates: start: 20000101
  2. DESPIRAMINE [Concomitant]
  3. PROLIXIN [Concomitant]

REACTIONS (5)
  - DIARRHOEA [None]
  - GLUCOSE TOLERANCE IMPAIRED [None]
  - LACTOSE INTOLERANCE [None]
  - UTERINE CANCER [None]
  - VOMITING [None]
